FAERS Safety Report 25653744 (Version 1)
Quarter: 2025Q3

REPORT INFORMATION
  Report Type: Report from Study
  Country: US (occurrence: US)
  Receive Date: 20250807
  Receipt Date: 20250807
  Transmission Date: 20251021
  Serious: Yes (Other)
  Sender: ALEXION PHARMACEUTICALS
  Company Number: US-ASTRAZENECA-202507USA029091US

PATIENT
  Sex: Female

DRUGS (1)
  1. OLAPARIB [Suspect]
     Active Substance: OLAPARIB
     Indication: Ovarian cancer
     Dosage: 300 MILLIGRAM, BID
     Dates: start: 202101

REACTIONS (7)
  - Neuropathy peripheral [Unknown]
  - Stomatitis [Unknown]
  - Erythema [Unknown]
  - Feeding disorder [Unknown]
  - Fatigue [Unknown]
  - Asthenia [Unknown]
  - Mouth ulceration [Unknown]
